FAERS Safety Report 6928040-9 (Version None)
Quarter: 2010Q3

REPORT INFORMATION
  Report Type: 
  Country: None (occurrence: None)
  Receive Date: 20100816
  Receipt Date: 20100816
  Transmission Date: 20110219
  Serious: No
  Sender: FDA-Public Use
  Company Number: None

PATIENT
  Age: 20 Year
  Sex: Male
  Weight: 63.5036 kg

DRUGS (2)
  1. ACCUTANE [Suspect]
     Indication: ACNE
     Dosage: 50MG 2 PO
     Route: 048
     Dates: start: 19980801, end: 19981231
  2. ACCUTANE [Suspect]
     Indication: ACNE
     Dosage: 50MG 2 PO
     Route: 048
     Dates: start: 19990601, end: 19990901

REACTIONS (2)
  - HEPATIC STEATOSIS [None]
  - VITILIGO [None]
